FAERS Safety Report 5138202-1 (Version None)
Quarter: 2006Q4

REPORT INFORMATION
  Report Type: 
  Country: None (occurrence: None)
  Receive Date: 20061030
  Receipt Date: 20060725
  Transmission Date: 20070319
  Serious: No
  Sender: FDA-Public Use
  Company Number: US-GLAXOSMITHKLINE-A0613493A

PATIENT
  Age: 67 Year
  Sex: Female

DRUGS (10)
  1. ADVAIR HFA [Suspect]
     Indication: ASTHMA
     Dosage: 1PUFF TWICE PER DAY
     Route: 055
     Dates: start: 20060301
  2. SINGULAIR [Concomitant]
  3. ALLEGRA-D 12 HOUR [Concomitant]
  4. NASONEX [Concomitant]
  5. DETROL LA [Concomitant]
  6. NEXIUM [Concomitant]
  7. ESTRADIOL INJ [Concomitant]
  8. HYDROCHLOROTHIAZIDE [Concomitant]
  9. LISINOPRIL [Concomitant]
  10. SYNTHROID [Concomitant]

REACTIONS (1)
  - DYSPNOEA [None]
